FAERS Safety Report 7756873-8 (Version None)
Quarter: 2011Q3

REPORT INFORMATION
  Report Type: 
  Country: None (occurrence: None)
  Receive Date: 20110916
  Receipt Date: 20110913
  Transmission Date: 20111222
  Serious: Yes (Hospitalization)
  Sender: FDA-Public Use
  Company Number: US-GLAXOSMITHKLINE-A0758753A

PATIENT
  Age: 81 Year
  Sex: Male
  Weight: 81.8 kg

DRUGS (2)
  1. GLIPIZIDE [Concomitant]
     Dates: start: 20050922
  2. AVANDIA [Suspect]
     Indication: TYPE 2 DIABETES MELLITUS
     Dosage: 2MG PER DAY
     Route: 065
     Dates: start: 20060919, end: 20070519

REACTIONS (3)
  - ACUTE MYOCARDIAL INFARCTION [None]
  - ATRIAL FIBRILLATION [None]
  - PAIN [None]
